FAERS Safety Report 6310482-6 (Version None)
Quarter: 2009Q3

REPORT INFORMATION
  Report Type: 
  Country: None (occurrence: None)
  Receive Date: 20090811
  Receipt Date: 20090623
  Transmission Date: 20100115
  Serious: No
  Sender: FDA-Public Use
  Company Number: 1000006997

PATIENT
  Age: 53 Year
  Sex: Female

DRUGS (11)
  1. SAVELLA [Suspect]
     Indication: FIBROMYALGIA
     Dosage: 12.5 MG (12.5 MG, 1 IN 1 D), ORAL;25 MG (12.5 MG,2 IN 1 D), ORAL; 100 MG (25 MG, 4 IN 1 D), ORAL
     Route: 048
     Dates: start: 20090519, end: 20090522
  2. SAVELLA [Suspect]
     Indication: FIBROMYALGIA
     Dosage: 12.5 MG (12.5 MG, 1 IN 1 D), ORAL;25 MG (12.5 MG,2 IN 1 D), ORAL; 100 MG (25 MG, 4 IN 1 D), ORAL
     Route: 048
     Dates: start: 20090523, end: 20090527
  3. SAVELLA [Suspect]
     Indication: FIBROMYALGIA
     Dosage: 12.5 MG (12.5 MG, 1 IN 1 D), ORAL;25 MG (12.5 MG,2 IN 1 D), ORAL; 100 MG (25 MG, 4 IN 1 D), ORAL
     Route: 048
     Dates: start: 20090528, end: 20090529
  4. LUNESTA [Concomitant]
  5. ZANAFLEX [Concomitant]
  6. PLAQUENIL [Concomitant]
  7. DIOVAN [Concomitant]
  8. BYSTOLIC [Concomitant]
  9. LYRICA [Concomitant]
  10. SYNTHROID [Concomitant]
  11. ESTROGEN [Concomitant]

REACTIONS (5)
  - DISORIENTATION [None]
  - FATIGUE [None]
  - HALLUCINATION [None]
  - SYNCOPE [None]
  - TREMOR [None]
